FAERS Safety Report 5076417-1 (Version None)
Quarter: 2006Q3

REPORT INFORMATION
  Report Type: 
  Country: None (occurrence: None)
  Receive Date: 20060807
  Receipt Date: 20060724
  Transmission Date: 20061208
  Serious: Yes (Other)
  Sender: FDA-Public Use
  Company Number: DE200607004700

PATIENT
  Age: 58 Year
  Sex: Female

DRUGS (5)
  1. ALIMTA [Suspect]
     Indication: SARCOMA UTERUS
  2. KEVATRIL (GRANISETRON HYDROCHLORIDE) [Concomitant]
  3. CORTISONE ACETATE [Concomitant]
  4. CYANOCOBALAMIN [Concomitant]
  5. FOLIC ACID [Concomitant]

REACTIONS (1)
  - NEPHRITIS INTERSTITIAL [None]
